FAERS Safety Report 8889850 (Version 1)
Quarter: 2012Q4

REPORT INFORMATION
  Report Type: 
  Country: US (occurrence: US)
  Receive Date: 20121107
  Receipt Date: 20121107
  Transmission Date: 20130627
  Serious: No
  Sender: FDA-Public Use
  Company Number: US-PFIZER INC-2012275305

PATIENT

DRUGS (2)
  1. CELEBREX [Suspect]
     Dosage: Once every 3 days
     Dates: start: 201209
  2. NEURONTIN [Suspect]
     Dosage: once at night

REACTIONS (2)
  - Urticaria [Unknown]
  - Rash [Unknown]
